FAERS Safety Report 18378465 (Version 1)
Quarter: 2020Q4

REPORT INFORMATION
  Report Type: Other
  Country: DE (occurrence: DE)
  Receive Date: 20201013
  Receipt Date: 20201013
  Transmission Date: 20210114
  Serious: Yes (Other)
  Sender: FDA-Public Use
  Company Number: DE-ROCHE-2693184

PATIENT
  Age: 28 Year
  Sex: Female

DRUGS (5)
  1. INTERFERON BETA-1A [Concomitant]
     Active Substance: INTERFERON BETA-1A
     Dates: start: 2012, end: 2014
  2. NATALIZUMAB [Concomitant]
     Active Substance: NATALIZUMAB
     Dates: start: 20150325, end: 20190208
  3. CORTISON [Concomitant]
     Active Substance: CORTISONE ACETATE
     Dates: start: 20190321, end: 20191108
  4. DIMETHYL FUMARATE [Concomitant]
     Active Substance: DIMETHYL FUMARATE
     Dates: start: 2014, end: 2015
  5. OCRELIZUMAB. [Suspect]
     Active Substance: OCRELIZUMAB
     Indication: RELAPSING MULTIPLE SCLEROSIS
     Route: 042
     Dates: start: 20191031

REACTIONS (1)
  - Alveolitis [Recovering/Resolving]

NARRATIVE: CASE EVENT DATE: 20200307
